FAERS Safety Report 5448222-5 (Version None)
Quarter: 2007Q3

REPORT INFORMATION
  Report Type: 
  Country: None (occurrence: None)
  Receive Date: 20070906
  Receipt Date: 20070906
  Transmission Date: 20080115
  Serious: Yes (Other)
  Sender: FDA-Public Use
  Company Number: None

PATIENT
  Age: 33 Year
  Sex: Female
  Weight: 79.3795 kg

DRUGS (1)
  1. ZELNORM [Suspect]
     Indication: IRRITABLE BOWEL SYNDROME
     Dosage: USED APPROXIMATELY 3-4 MO
     Dates: start: 20060901, end: 20061201

REACTIONS (2)
  - CHEST PAIN [None]
  - HEART RATE INCREASED [None]
